FAERS Safety Report 19735999 (Version 1)
Quarter: 2021Q3

REPORT INFORMATION
  Report Type: Report from Study
  Country: PA (occurrence: PA)
  Receive Date: 20210823
  Receipt Date: 20210823
  Transmission Date: 20211014
  Serious: Yes (Other)
  Sender: FDA-Public Use
  Company Number: NVSC2021PA185840

PATIENT
  Sex: Male
  Weight: 72.56 kg

DRUGS (2)
  1. AMLODIPINE [Suspect]
     Active Substance: AMLODIPINE BESYLATE
     Indication: HYPERTENSION
     Dosage: 5 MG, Q12H (1 OF 5 MG, 7 YEARS AGO APPROXIMATELY))
     Route: 065
  2. HYDROXYUREA. [Concomitant]
     Active Substance: HYDROXYUREA
     Indication: PRODUCT USED FOR UNKNOWN INDICATION
     Route: 065

REACTIONS (7)
  - Cholelithiasis [Unknown]
  - Dizziness [Unknown]
  - Somnolence [Unknown]
  - Nausea [Unknown]
  - Platelet count increased [Unknown]
  - Bone marrow disorder [Unknown]
  - Platelet count decreased [Unknown]
